FAERS Safety Report 8574489-0 (Version None)
Quarter: 2012Q3

REPORT INFORMATION
  Report Type: 
  Country: None (occurrence: None)
  Receive Date: 20120806
  Receipt Date: 20120206
  Transmission Date: 20120928
  Serious: No
  Sender: FDA-Public Use
  Company Number: US-ABBOTT-12P-163-0903465-00

PATIENT
  Sex: Male
  Weight: 86.26 kg

DRUGS (6)
  1. DEPAKOTE ER [Suspect]
     Indication: CONVULSION
     Route: 048
     Dates: start: 20111228, end: 20120104
  2. DEPAKOTE ER [Suspect]
     Indication: FALL
     Route: 048
     Dates: start: 20120104, end: 20120111
  3. CITALOPRAM HYDROBROMIDE [Concomitant]
     Indication: DEPRESSION
     Route: 048
  4. METOPROLOL TARTRATE [Concomitant]
     Indication: HYPERTENSION
     Route: 048
  5. PHENYTOIN [Concomitant]
     Indication: PRODUCT USED FOR UNKNOWN INDICATION
     Route: 048
  6. DEPAKOTE ER [Suspect]
     Dosage: PATIENT WAS TAPERED OFF TAPERED OFF MEDICATION
     Route: 048
     Dates: start: 20120111, end: 20120127

REACTIONS (2)
  - MEMORY IMPAIRMENT [None]
  - AGITATION [None]
